FAERS Safety Report 10243339 (Version 2)
Quarter: 2014Q3

REPORT INFORMATION
  Report Type: Spontaneous
  Country: FI (occurrence: FI)
  Receive Date: 20140618
  Receipt Date: 20140702
  Transmission Date: 20150326
  Serious: Yes (Other)
  Sender: FDA-Public Use
  Company Number: PHHY2014FI074355

PATIENT
  Age: 44 Year
  Sex: Male
  Weight: 118 kg

DRUGS (1)
  1. EXJADE [Suspect]
     Active Substance: DEFERASIROX
     Indication: ACUTE MYELOID LEUKAEMIA
     Dosage: 1500 MG, QD (13 MG/KG APPROXIMATELY)
     Route: 048
     Dates: start: 20140414, end: 20140602

REACTIONS (4)
  - Urinary sediment present [Unknown]
  - Chromaturia [Unknown]
  - Red blood cells urine positive [Recovered/Resolved]
  - Haematuria [Recovered/Resolved]

NARRATIVE: CASE EVENT DATE: 20140601
